FAERS Safety Report 11705590 (Version 2)
Quarter: 2016Q1

REPORT INFORMATION
  Report Type: Report from Study
  Country: KR (occurrence: KR)
  Receive Date: 20151106
  Receipt Date: 20160114
  Transmission Date: 20160525
  Serious: Yes (Hospitalization, Other)
  Sender: FDA-Public Use
  Company Number: KR-BRISTOL-MYERS SQUIBB COMPANY-BMS-2015-075471

PATIENT
  Age: 76 Year
  Sex: Female

DRUGS (2)
  1. APIXABAN [Suspect]
     Active Substance: APIXABAN
     Dosage: 5 MG, BID
     Route: 048
     Dates: start: 20151007
  2. APIXABAN [Suspect]
     Active Substance: APIXABAN
     Indication: CEREBROVASCULAR ACCIDENT PROPHYLAXIS
     Dosage: 5 MG, BID
     Route: 048
     Dates: start: 20150508, end: 20150929

REACTIONS (2)
  - Joint injury [Recovered/Resolved]
  - Knee arthroplasty [Recovered/Resolved]

NARRATIVE: CASE EVENT DATE: 20150927
